FAERS Safety Report 7353706-9 (Version None)
Quarter: 2011Q1

REPORT INFORMATION
  Report Type: 
  Country: None (occurrence: None)
  Receive Date: 20110303
  Receipt Date: 20101110
  Transmission Date: 20110831
  Serious: Yes (Other)
  Sender: FDA-Public Use
  Company Number: WAES 1011USA02751

PATIENT
  Age: 68 Year
  Sex: Male
  Weight: 74.3899 kg

DRUGS (1)
  1. PRINIVIL [Suspect]
     Indication: HYPERTENSION
     Dosage: 10 MG/DAILY/PO
     Route: 048
     Dates: start: 20061128

REACTIONS (2)
  - COUGH [None]
  - DRUG HYPERSENSITIVITY [None]
